FAERS Safety Report 23161856 (Version 2)
Quarter: 2024Q1

REPORT INFORMATION
  Report Type: Report from Study
  Country: US (occurrence: US)
  Receive Date: 20231108
  Receipt Date: 20240113
  Transmission Date: 20240410
  Serious: Yes (Other)
  Sender: FDA-Public Use
  Company Number: US-ABBVIE-5486653

PATIENT
  Sex: Female

DRUGS (4)
  1. RINVOQ [Suspect]
     Active Substance: UPADACITINIB
     Indication: Rheumatoid arthritis
     Dosage: STRENGTH-30MG?LAST ADMIN DATE-OCT 2023
     Route: 048
     Dates: start: 20231006
  2. RINVOQ [Suspect]
     Active Substance: UPADACITINIB
     Indication: Rheumatoid arthritis
     Dosage: STRENGH-30 MG
     Route: 048
  3. RINVOQ [Suspect]
     Active Substance: UPADACITINIB
     Indication: Rheumatoid arthritis
     Dosage: LAST ADMIN DATE-2023?STRENGTH-30MG
     Route: 048
     Dates: start: 202310
  4. PREDNISONE [Concomitant]
     Active Substance: PREDNISONE
     Indication: Product used for unknown indication

REACTIONS (9)
  - Meniscus operation [Unknown]
  - Dermatitis [Unknown]
  - Walking aid user [Unknown]
  - Crohn^s disease [Recovering/Resolving]
  - Intentional product misuse [Unknown]
  - Incorrect dose administered [Unknown]
  - Rheumatoid arthritis [Unknown]
  - Paronychia [Recovering/Resolving]
  - Drug ineffective [Unknown]

NARRATIVE: CASE EVENT DATE: 20230101
